FAERS Safety Report 5901742-9 (Version None)
Quarter: 2008Q3

REPORT INFORMATION
  Report Type: 
  Country: None (occurrence: None)
  Receive Date: 20080929
  Receipt Date: 20080920
  Transmission Date: 20090109
  Serious: Yes (Death, Hospitalization)
  Sender: FDA-Public Use
  Company Number: JP-BAYER-200812171BYL

PATIENT
  Age: 58 Year
  Sex: Female

DRUGS (3)
  1. NEXAVAR [Suspect]
     Indication: RENAL CELL CARCINOMA
     Route: 048
     Dates: start: 20070626, end: 20070717
  2. NEXAVAR [Suspect]
     Route: 048
     Dates: start: 20070724
  3. INTERFERON [Concomitant]
     Indication: RENAL CELL CARCINOMA
     Route: 030

REACTIONS (3)
  - DEATH [None]
  - LYMPHANGIOSIS CARCINOMATOSA [None]
  - PLATELET COUNT DECREASED [None]
